FAERS Safety Report 14583503 (Version 2)
Quarter: 2018Q1

REPORT INFORMATION
  Report Type: Spontaneous
  Country: SA (occurrence: SA)
  Receive Date: 20180228
  Receipt Date: 20180321
  Transmission Date: 20180509
  Serious: Yes (Hospitalization)
  Sender: FDA-Public Use
  Company Number: PHHY2018SA032887

PATIENT
  Age: 61 Year
  Sex: Female

DRUGS (2)
  1. ZARZIO [Suspect]
     Active Substance: FILGRASTIM
     Indication: BREAST CANCER
  2. ZARZIO [Suspect]
     Active Substance: FILGRASTIM
     Indication: NEUTROPENIA
     Dosage: 30 MU
     Route: 042
     Dates: start: 201802, end: 20180218

REACTIONS (3)
  - Pyrexia [Unknown]
  - Pancytopenia [Unknown]
  - Drug ineffective [Unknown]

NARRATIVE: CASE EVENT DATE: 201802
